FAERS Safety Report 8154580-3 (Version None)
Quarter: 2012Q1

REPORT INFORMATION
  Report Type: 
  Country: None (occurrence: None)
  Receive Date: 20120221
  Receipt Date: 20120214
  Transmission Date: 20120608
  Serious: Yes (Hospitalization)
  Sender: FDA-Public Use
  Company Number: CA-B.I. PHARMACEUTICALS,INC./RIDGEFIELD-2012-CN-00353CN

PATIENT
  Age: 85 Year
  Sex: Female

DRUGS (4)
  1. FUROSEMIDE [Concomitant]
     Route: 065
  2. CANDESARTAN CILEXETIL [Concomitant]
     Route: 065
  3. PRADAXA [Suspect]
     Dosage: 220 MG
     Route: 048
  4. BISOPROLOL FUMARATE [Concomitant]
     Route: 065

REACTIONS (4)
  - ACTIVATED PARTIAL THROMBOPLASTIN TIME PROLONGED [None]
  - BLOOD SODIUM DECREASED [None]
  - FALL [None]
  - SUBDURAL HAEMATOMA [None]
